FAERS Safety Report 8424376-3 (Version None)
Quarter: 2012Q2

REPORT INFORMATION
  Report Type: 
  Country: None (occurrence: None)
  Receive Date: 20120608
  Receipt Date: 20110628
  Transmission Date: 20120825
  Serious: No
  Sender: FDA-Public Use
  Company Number: US-ASTRAZENECA-2011SE39458

PATIENT
  Age: 79 Year
  Sex: Male
  Weight: 80.3 kg

DRUGS (10)
  1. PULMICORT FLEXHALER [Suspect]
     Indication: ASTHMA
     Route: 055
     Dates: start: 20110501
  2. NEXIUM [Concomitant]
  3. LEVOTHYROXINE SODIUM [Concomitant]
  4. JANUMET [Concomitant]
     Indication: DIABETES MELLITUS
  5. IMODIUM [Concomitant]
  6. DILTIAZEM [Concomitant]
  7. LOSARTAN POTASSIUM AND HYDROCHLOROTHIAZIDE [Concomitant]
  8. SIMVASTATIN [Concomitant]
  9. LACTAID [Concomitant]
  10. ZYMAR [Concomitant]
     Indication: EYE DISORDER

REACTIONS (2)
  - ABNORMAL SENSATION IN EYE [None]
  - VITREOUS FLOATERS [None]
